FAERS Safety Report 6527217-4 (Version None)
Quarter: 2010Q1

REPORT INFORMATION
  Report Type: 
  Country: None (occurrence: None)
  Receive Date: 20100105
  Receipt Date: 20091224
  Transmission Date: 20100710
  Serious: Yes (Disabling, Other)
  Sender: FDA-Public Use
  Company Number: CA-CELGENEUS-028-21880-09122125

PATIENT
  Sex: Male

DRUGS (1)
  1. REVLIMID [Suspect]
     Indication: MULTIPLE MYELOMA
     Route: 048
     Dates: start: 20091207

REACTIONS (7)
  - ARTHRALGIA [None]
  - COUGH [None]
  - MUSCLE SPASMS [None]
  - ORAL PAIN [None]
  - SYNCOPE [None]
  - TOOTHACHE [None]
  - WHEEZING [None]
